FAERS Safety Report 12966328 (Version 1)
Quarter: 2016Q4

REPORT INFORMATION
  Report Type: Other
  Country: None (occurrence: US)
  Receive Date: 20161122
  Receipt Date: 20161122
  Transmission Date: 20170207
  Serious: Yes (Other)
  Sender: FDA-Public Use
  Company Number: US-GUTHY-RENKER LLC-1059973

PATIENT
  Age: 51 Year
  Sex: Female

DRUGS (2)
  1. LISINOPRIL, SPIRONOLACTONE, ALBUTEROL INHALER [Concomitant]
  2. IT COSMETICS BYE BYE FOUNDATION SPF 50+ [Suspect]
     Active Substance: TITANIUM DIOXIDE\ZINC OXIDE
     Indication: PROPHYLAXIS AGAINST SOLAR RADIATION
     Route: 061
     Dates: start: 20160605, end: 20161117

REACTIONS (6)
  - Burning sensation [None]
  - Eye swelling [None]
  - Blister [None]
  - Dyspnoea [Recovered/Resolved]
  - Dermatitis [None]
  - Skin disorder [None]

NARRATIVE: CASE EVENT DATE: 20161117
